FAERS Safety Report 8365490-0 (Version None)
Quarter: 2012Q2

REPORT INFORMATION
  Report Type: 
  Country: None (occurrence: None)
  Receive Date: 20120516
  Receipt Date: 20120509
  Transmission Date: 20120825
  Serious: Yes (Hospitalization, Other)
  Sender: FDA-Public Use
  Company Number: US-BAYER-2012-028618

PATIENT
  Age: 24 Year
  Sex: Female
  Weight: 68 kg

DRUGS (8)
  1. LORTAB [Concomitant]
  2. MUCINEX DM [Concomitant]
     Indication: SINUSITIS
  3. MORPHINE [Concomitant]
  4. YAZ [Suspect]
     Indication: CONTRACEPTION
     Dosage: UNK UNK, QD
     Dates: start: 20060301, end: 20070301
  5. CIPROFLOXACIN HCL [Concomitant]
  6. OMNICEF [Concomitant]
     Dosage: 300 MG, UNK
     Dates: start: 20070228
  7. PERCOCET [Concomitant]
  8. AMOXICILLIN [Concomitant]
     Indication: SINUSITIS
     Dosage: UNK

REACTIONS (14)
  - COUGH [None]
  - NAUSEA [None]
  - EMOTIONAL DISTRESS [None]
  - GENERAL PHYSICAL HEALTH DETERIORATION [None]
  - TREMOR [None]
  - ANHEDONIA [None]
  - ANXIETY [None]
  - ABDOMINAL PAIN UPPER [None]
  - HAEMATEMESIS [None]
  - HEADACHE [None]
  - PULMONARY EMBOLISM [None]
  - MALLORY-WEISS SYNDROME [None]
  - PLEURITIC PAIN [None]
  - DYSPNOEA [None]
